FAERS Safety Report 23093358 (Version 1)
Quarter: 2023Q4

REPORT INFORMATION
  Report Type: Report from Study
  Country: CA (occurrence: CA)
  Receive Date: 20231022
  Receipt Date: 20231022
  Transmission Date: 20240110
  Serious: Yes (Hospitalization)
  Sender: FDA-Public Use
  Company Number: CA-ABBVIE-5456221

PATIENT
  Sex: Male

DRUGS (1)
  1. SKYRIZI [Suspect]
     Active Substance: RISANKIZUMAB-RZAA
     Indication: Psoriasis
     Dosage: WEEK 0 DOSE, FREQUENCY TEXT: AT WEEK 0, WEEK 4 AND EVERY 12 MONTHS
     Route: 058
     Dates: start: 20230922, end: 20230922

REACTIONS (1)
  - Head injury [Unknown]

NARRATIVE: CASE EVENT DATE: 20230101
